FAERS Safety Report 7653584 (Version 3)
Quarter: 2014Q2

REPORT INFORMATION
  Report Type: Spontaneous
  Country: US (occurrence: US)
  Receive Date: 20101102
  Receipt Date: 20140529
  Transmission Date: 20141212
  Serious: Yes (Hospitalization, Other)
  Sender: FDA-Public Use
  Company Number: US-BAYER-201038956NA

PATIENT
  Age: 37 Year
  Sex: Female
  Weight: 68.03 kg

DRUGS (8)
  1. YAZ [Suspect]
     Indication: PRODUCT USED FOR UNKNOWN INDICATION
     Dosage: UNK
     Route: 048
     Dates: start: 2006, end: 2008
  2. YASMIN [Suspect]
     Dosage: UNK
     Dates: start: 2006, end: 2008
  3. ZYRTEC [Concomitant]
  4. PAROXETINE [Concomitant]
  5. PROPANOLOL [Concomitant]
  6. AMANTADINE [Concomitant]
  7. FLUOXETINE [Concomitant]
  8. FAMOTIDINE [Concomitant]

REACTIONS (4)
  - Gallbladder non-functioning [None]
  - Cholecystitis chronic [None]
  - Abdominal pain [None]
  - Cholelithiasis [None]
